FAERS Safety Report 5294512-9 (Version None)
Quarter: 2007Q2

REPORT INFORMATION
  Report Type: 
  Country: None (occurrence: None)
  Receive Date: 20070409
  Receipt Date: 20070409
  Transmission Date: 20071010
  Serious: Yes (Hospitalization)
  Sender: FDA-Public Use
  Company Number: None

PATIENT
  Sex: Male
  Weight: 88.5 kg

DRUGS (1)
  1. TERAZOSIN HCL [Suspect]
     Indication: NOCTURIA
     Dosage: 4 MG QHS PO
     Route: 048
     Dates: start: 20070214, end: 20070306

REACTIONS (8)
  - BALANCE DISORDER [None]
  - BLOOD CHLORIDE DECREASED [None]
  - BLOOD SODIUM DECREASED [None]
  - DIZZINESS [None]
  - HAEMATOCRIT DECREASED [None]
  - HAEMOGLOBIN DECREASED [None]
  - PALLOR [None]
  - UNRESPONSIVE TO STIMULI [None]
